FAERS Safety Report 6987791-0 (Version None)
Quarter: 2010Q3

REPORT INFORMATION
  Report Type: 
  Country: None (occurrence: None)
  Receive Date: 20100916
  Receipt Date: 20100902
  Transmission Date: 20110219
  Serious: Yes (Hospitalization)
  Sender: FDA-Public Use
  Company Number: US-EISAI INC.-E7867-00167-SPO-US

PATIENT
  Age: 38 Year

DRUGS (1)
  1. GLIADEL [Suspect]
     Indication: GLIOBLASTOMA MULTIFORME
     Dosage: UNKNOWN
     Route: 018

REACTIONS (2)
  - BRAIN ABSCESS [None]
  - OSTEITIS [None]
